FAERS Safety Report 4681840-0 (Version None)
Quarter: 2005Q2

REPORT INFORMATION
  Report Type: 
  Country: None (occurrence: None)
  Receive Date: 20050602
  Receipt Date: 20050517
  Transmission Date: 20051028
  Serious: Yes (Death)
  Sender: FDA-Public Use
  Company Number: EWC050443756

PATIENT
  Age: 77 Year
  Sex: Male
  Weight: 60 kg

DRUGS (9)
  1. ALIMTA [Suspect]
     Dosage: 1500 MG/L OTHER
     Route: 050
     Dates: start: 20050317, end: 20050407
  2. B-KOMBIN FORTE [Concomitant]
  3. VITAMIN 12 [Concomitant]
  4. ACETAMINOPHEN [Concomitant]
  5. ATROVENT (IRPRATROPIUM BROMIDE) [Concomitant]
  6. TENORMIN (ATENOLOL EG) [Concomitant]
  7. KALCIPOS (CALCIUM CARBONATE) [Concomitant]
  8. LANSOPRAZOLE [Concomitant]
  9. FRAGMIN [Concomitant]

REACTIONS (7)
  - HYPOXIA [None]
  - IMMUNOSUPPRESSION [None]
  - OPPORTUNISTIC INFECTION [None]
  - PNEUMOCYSTIS JIROVECI PNEUMONIA [None]
  - RESPIRATORY FAILURE [None]
  - RESPIRATORY TRACT INFECTION [None]
  - THERAPY NON-RESPONDER [None]
